FAERS Safety Report 9975358 (Version 1)
Quarter: 2014Q1

REPORT INFORMATION
  Report Type: Report from Study
  Country: US (occurrence: US)
  Receive Date: 20140306
  Receipt Date: 20140306
  Transmission Date: 20141002
  Serious: No
  Sender: FDA-Public Use
  Company Number: US-ABBVIE-13P-163-1159664-00

PATIENT
  Age: 64 Year
  Sex: Female
  Weight: 65.83 kg

DRUGS (11)
  1. HUMIRA [Suspect]
     Indication: CROHN^S DISEASE
     Dosage: LOADING DOSE
     Dates: start: 201306, end: 201306
  2. HUMIRA [Suspect]
     Dosage: SECOND DOSE
     Dates: start: 2013, end: 2013
  3. HUMIRA [Suspect]
     Dates: start: 2013
  4. NEURONTIN [Concomitant]
     Indication: HEADACHE
  5. NORTRIPTYLINE [Concomitant]
     Indication: CROHN^S DISEASE
  6. LEXAPRO [Concomitant]
     Indication: ANXIETY
  7. CLONAZEPAM [Concomitant]
     Indication: ANXIETY
  8. CLONAZEPAM [Concomitant]
     Indication: SLEEP DISORDER
  9. NEXIUM [Concomitant]
     Indication: GASTROOESOPHAGEAL REFLUX DISEASE
  10. NORVASC [Concomitant]
     Indication: HYPERTENSION
  11. METAMUCIL [Concomitant]
     Indication: SUPPLEMENTATION THERAPY

REACTIONS (5)
  - Faeces hard [Not Recovered/Not Resolved]
  - Vomiting [Not Recovered/Not Resolved]
  - Fungal infection [Not Recovered/Not Resolved]
  - Therapeutic response unexpected [Not Recovered/Not Resolved]
  - Abdominal pain lower [Not Recovered/Not Resolved]
